FAERS Safety Report 11638374 (Version 1)
Quarter: 2015Q4

REPORT INFORMATION
  Report Type: Spontaneous
  Country: US (occurrence: US)
  Receive Date: 20151016
  Receipt Date: 20151016
  Transmission Date: 20160304
  Serious: No
  Sender: FDA-Public Use
  Company Number: US-INDIVIOR-RB-72677-2014

PATIENT
  Age: 45 Year
  Sex: Male

DRUGS (4)
  1. COREG [Suspect]
     Active Substance: CARVEDILOL
     Dosage: 6.25 MG, QID
     Route: 048
     Dates: start: 201410
  2. SUBOXONE [Suspect]
     Active Substance: BUPRENORPHINE HYDROCHLORIDE\NALOXONE HYDROCHLORIDE
     Indication: EYE PAIN
     Dosage: 1/3RD OF FILM, TID
     Route: 060
     Dates: start: 20141010, end: 20141010
  3. SUBOXONE [Suspect]
     Active Substance: BUPRENORPHINE HYDROCHLORIDE\NALOXONE HYDROCHLORIDE
     Indication: DRUG DEPENDENCE
     Dosage: 1/4TH OF FILM EVERY 2 HRS
     Route: 060
     Dates: start: 20141010, end: 20141010
  4. COREG [Suspect]
     Active Substance: CARVEDILOL
     Indication: CARDIOMYOPATHY
     Dosage: 25 MG, BID
     Route: 048
     Dates: start: 2005, end: 201410

REACTIONS (10)
  - Palpitations [Not Recovered/Not Resolved]
  - Dizziness [Not Recovered/Not Resolved]
  - Fatigue [Recovered/Resolved]
  - Drug prescribing error [Recovered/Resolved]
  - Pemphigoid [Unknown]
  - Narcolepsy [Recovered/Resolved]
  - Somnolence [Not Recovered/Not Resolved]
  - Muscle twitching [Recovered/Resolved]
  - Orthostatic hypotension [Recovered/Resolved]
  - Wrong technique in product usage process [Recovered/Resolved]

NARRATIVE: CASE EVENT DATE: 201410
